FAERS Safety Report 7729455-1 (Version None)
Quarter: 2011Q3

REPORT INFORMATION
  Report Type: 
  Country: None (occurrence: None)
  Receive Date: 20110901
  Receipt Date: 20110104
  Transmission Date: 20111222
  Serious: No
  Sender: FDA-Public Use
  Company Number: M2011-001B

PATIENT
  Age: 47 Year
  Sex: Female

DRUGS (1)
  1. ALLERGEN MIX [Suspect]
     Indication: IMMUNOMODULATORY THERAPY
     Dosage: 0.3 ML INJECTION, SINCE NOV. TO DEC 2010
     Dates: end: 20101201

REACTIONS (3)
  - PRURITUS GENERALISED [None]
  - ABDOMINAL PAIN [None]
  - ERYTHEMA [None]
